FAERS Safety Report 8603549-0 (Version None)
Quarter: 2012Q3

REPORT INFORMATION
  Report Type: 
  Country: None (occurrence: None)
  Receive Date: 20120817
  Receipt Date: 20120810
  Transmission Date: 20120928
  Serious: Yes (Other)
  Sender: FDA-Public Use
  Company Number: CA-ROCHE-1101113

PATIENT
  Sex: Male
  Weight: 89.892 kg

DRUGS (8)
  1. ACTEMRA [Suspect]
     Dates: start: 20120523
  2. PROLIA [Concomitant]
  3. ATACAND [Concomitant]
  4. PREDNISONE TAB [Concomitant]
  5. TYLENOL W/ CODEINE NO. 3 [Concomitant]
  6. BISOPROLOL [Concomitant]
     Indication: TACHYCARDIA
  7. ACTEMRA [Suspect]
     Indication: RHEUMATOID ARTHRITIS
     Route: 042
     Dates: start: 20120424
  8. PREVACID [Concomitant]

REACTIONS (3)
  - BLOOD CHOLESTEROL INCREASED [None]
  - EOSINOPHIL COUNT INCREASED [None]
  - PRURITUS [None]
